FAERS Safety Report 14730033 (Version 1)
Quarter: 2018Q2

REPORT INFORMATION
  Report Type: Spontaneous
  Country: US (occurrence: US)
  Receive Date: 20180406
  Receipt Date: 20180406
  Transmission Date: 20180711
  Serious: No
  Sender: FDA-Public Use
  Company Number: US-MYLANLABS-2018M1017544

PATIENT
  Sex: Female

DRUGS (1)
  1. AZELASTINE. [Suspect]
     Active Substance: AZELASTINE HYDROCHLORIDE
     Indication: RHINORRHOEA
     Dosage: UNK
     Dates: start: 20180311

REACTIONS (10)
  - Sneezing [Recovered/Resolved]
  - Incorrect dose administered [Unknown]
  - Drug effect increased [Unknown]
  - Dysgeusia [Recovered/Resolved]
  - Nasal dryness [Recovered/Resolved]
  - Nasal discomfort [Recovered/Resolved]
  - Eye irritation [Recovered/Resolved]
  - Rhinorrhoea [Recovered/Resolved]
  - Product quality issue [Unknown]
  - Lacrimation increased [Recovered/Resolved]

NARRATIVE: CASE EVENT DATE: 20180311
